FAERS Safety Report 23692463 (Version 1)
Quarter: 2024Q2

REPORT INFORMATION
  Report Type: Spontaneous
  Country: FR (occurrence: FR)
  Receive Date: 20240401
  Receipt Date: 20240401
  Transmission Date: 20240715
  Serious: Yes (Death, Other)
  Sender: FDA-Public Use
  Company Number: None

PATIENT
  Age: 90 Year
  Sex: Female

DRUGS (10)
  1. EFFEXOR [Interacting]
     Active Substance: VENLAFAXINE HYDROCHLORIDE
     Dosage: 37.5 MG, 1X/DAY
     Route: 048
     Dates: end: 20041031
  2. SOLU-MEDROL [Interacting]
     Active Substance: METHYLPREDNISOLONE SODIUM SUCCINATE
     Dosage: 40 MG, 1X/DAY
     Route: 042
     Dates: start: 20041031, end: 20041103
  3. FLUINDIONE [Interacting]
     Active Substance: FLUINDIONE
     Dosage: 5 MG, 1X/DAY
     Route: 048
     Dates: start: 20041007, end: 20041102
  4. OMEPRAZOLE [Interacting]
     Active Substance: OMEPRAZOLE
     Dosage: 20 MG, 1X/DAY
     Route: 048
     Dates: start: 20041031, end: 20041103
  5. OFLOXACIN [Interacting]
     Active Substance: OFLOXACIN
     Dosage: 200 MG, 1X/DAY
     Route: 042
     Dates: start: 20041031, end: 20041110
  6. PERFALGAN [Interacting]
     Active Substance: ACETAMINOPHEN
     Dosage: UNK
     Route: 042
     Dates: start: 20041031, end: 20041101
  7. ASPIRIN DL-LYSINE [Concomitant]
     Active Substance: ASPIRIN DL-LYSINE
     Dosage: UNK
     Route: 065
  8. NITROGLYCERIN [Concomitant]
     Active Substance: NITROGLYCERIN
     Dosage: UNK
     Route: 065
  9. LORAZEPAM [Concomitant]
     Active Substance: LORAZEPAM
     Dosage: UNK
     Route: 048
  10. TIAPRIDE HYDROCHLORIDE [Concomitant]
     Active Substance: TIAPRIDE HYDROCHLORIDE
     Dosage: UNK
     Route: 065

REACTIONS (10)
  - Drug interaction [Fatal]
  - Gastrointestinal haemorrhage [Fatal]
  - Hypovolaemia [Fatal]
  - Bronchitis [Fatal]
  - Deep vein thrombosis [Unknown]
  - Pulmonary embolism [Unknown]
  - Pulmonary oedema [Unknown]
  - Respiratory distress [Unknown]
  - Blood pressure systolic decreased [Unknown]
  - International normalised ratio increased [Unknown]

NARRATIVE: CASE EVENT DATE: 20040101
